FAERS Safety Report 8493057-2 (Version None)
Quarter: 2012Q3

REPORT INFORMATION
  Report Type: 
  Country: None (occurrence: None)
  Receive Date: 20120706
  Receipt Date: 20120621
  Transmission Date: 20120928
  Serious: Yes (Disabling)
  Sender: FDA-Public Use
  Company Number: GB-WATSON-2012-10922

PATIENT
  Age: 72 Year
  Sex: Female
  Weight: 84 kg

DRUGS (16)
  1. ACETAMINOPHEN AND CODEINE PHOSPHATE [Concomitant]
     Indication: PRODUCT USED FOR UNKNOWN INDICATION
     Dosage: UNK
     Route: 065
     Dates: start: 20120529
  2. SIMVASTATIN [Suspect]
     Indication: PRODUCT USED FOR UNKNOWN INDICATION
     Dosage: UNKNOWN
     Route: 065
  3. PLAVIX [Concomitant]
     Indication: PRODUCT USED FOR UNKNOWN INDICATION
     Dosage: UNK
     Route: 065
     Dates: start: 20120529
  4. PLAVIX [Concomitant]
     Dosage: UNK
     Route: 065
     Dates: start: 20120215, end: 20120316
  5. ACETAMINOPHEN AND CODEINE PHOSPHATE [Concomitant]
     Dosage: UNK
     Route: 065
     Dates: start: 20120402, end: 20120430
  6. LEVOTHYROXINE SODIUM [Concomitant]
     Indication: PRODUCT USED FOR UNKNOWN INDICATION
     Dosage: UNK
     Route: 065
     Dates: start: 20120529
  7. VALSARTAN [Concomitant]
     Indication: PRODUCT USED FOR UNKNOWN INDICATION
     Dosage: UNK
     Route: 065
     Dates: start: 20120529
  8. BEZAFIBRATE [Concomitant]
     Indication: PRODUCT USED FOR UNKNOWN INDICATION
     Dosage: UNK
     Route: 065
     Dates: start: 20120529
  9. LANSOPRAZOLE [Concomitant]
     Indication: PRODUCT USED FOR UNKNOWN INDICATION
     Dosage: UNK
     Route: 065
     Dates: start: 20120529
  10. ASPIRIN [Concomitant]
     Dosage: UNK
     Route: 065
     Dates: start: 20120402, end: 20120430
  11. BISOPROLOL FUMARATE [Concomitant]
     Dosage: UNK
     Route: 065
     Dates: start: 20120402, end: 20120430
  12. PLAVIX [Concomitant]
     Dosage: UNK
     Route: 065
     Dates: start: 20120402, end: 20120502
  13. BISOPROLOL FUMARATE [Concomitant]
     Indication: PRODUCT USED FOR UNKNOWN INDICATION
     Dosage: UNK
     Route: 065
     Dates: start: 20120529
  14. VALSARTAN [Concomitant]
     Dosage: UNK
     Route: 065
     Dates: start: 20120402, end: 20120430
  15. ASPIRIN [Concomitant]
     Indication: PRODUCT USED FOR UNKNOWN INDICATION
     Dosage: UNK
     Route: 065
     Dates: start: 20120529
  16. LEVOTHYROXINE SODIUM [Concomitant]
     Dosage: UNK
     Route: 065
     Dates: start: 20120402, end: 20120517

REACTIONS (3)
  - PAIN IN EXTREMITY [None]
  - MASS [None]
  - OEDEMA PERIPHERAL [None]
